FAERS Safety Report 10198206 (Version 3)
Quarter: 2016Q4

REPORT INFORMATION
  Report Type: Spontaneous
  Country: MX (occurrence: MX)
  Receive Date: 20140527
  Receipt Date: 20161122
  Transmission Date: 20170206
  Serious: No
  Sender: FDA-Public Use
  Company Number: MX-UCBSA-120519

PATIENT
  Sex: Male

DRUGS (1)
  1. VIMPAT [Suspect]
     Active Substance: LACOSAMIDE
     Indication: EPILEPSY
     Dosage: 100 MG, ONCE DAILY (QD)
     Route: 048

REACTIONS (1)
  - Off label use [Unknown]
